FAERS Safety Report 9520376 (Version 2)
Quarter: 2013Q3

REPORT INFORMATION
  Report Type: Spontaneous
  Country: US (occurrence: US)
  Receive Date: 20130912
  Receipt Date: 20130927
  Transmission Date: 20140515
  Serious: Yes (Hospitalization)
  Sender: FDA-Public Use
  Company Number: US-B.I. PHARMACEUTICALS,INC./RIDGEFIELD-2013-BI-28048BP

PATIENT
  Age: 84 Year
  Sex: Female
  Weight: 41 kg

DRUGS (2)
  1. SPIRIVA [Suspect]
     Indication: CHRONIC OBSTRUCTIVE PULMONARY DISEASE
     Dosage: 18 MCG
     Route: 055
     Dates: start: 2004
  2. TYLENOL [Concomitant]
     Indication: ARTHRITIS
     Dosage: 1000 MG
     Route: 048

REACTIONS (3)
  - Mass [Recovered/Resolved]
  - Oedema mouth [Not Recovered/Not Resolved]
  - Dysphonia [Not Recovered/Not Resolved]
